FAERS Safety Report 12147543 (Version 2)
Quarter: 2016Q1

REPORT INFORMATION
  Report Type: Report from Study
  Country: AR (occurrence: AR)
  Receive Date: 20160304
  Receipt Date: 20160318
  Transmission Date: 20160526
  Serious: Yes (Other)
  Sender: FDA-Public Use
  Company Number: PHHY2016AR027733

PATIENT
  Age: 76 Year
  Sex: Female

DRUGS (3)
  1. EXFORGE [Suspect]
     Active Substance: AMLODIPINE BESYLATE\VALSARTAN
     Indication: HYPERTENSION
     Dosage: STARTED FROM LAST YEAR
     Route: 065
  2. DIOVAN [Suspect]
     Active Substance: VALSARTAN
     Indication: HYPERTENSION
     Dosage: 160 MG, QD (STOPED IN LAST YEAR)
     Route: 065
     Dates: start: 2010
  3. DIOVAN [Suspect]
     Active Substance: VALSARTAN
     Dosage: 320 MG, QD (FROM MORE THAN A YEAR AGO)
     Route: 065

REACTIONS (13)
  - Malaise [Unknown]
  - Fear [Recovering/Resolving]
  - Arthralgia [Unknown]
  - Dizziness [Recovered/Resolved]
  - Headache [Unknown]
  - Anxiety [Recovered/Resolved]
  - Sensory disturbance [Unknown]
  - Fall [Recovered/Resolved]
  - Hypotonia [Recovered/Resolved]
  - Head injury [Recovered/Resolved]
  - Cataract [Recovered/Resolved]
  - Osteoarthritis [Unknown]
  - Blood pressure decreased [Recovered/Resolved]

NARRATIVE: CASE EVENT DATE: 201512
